FAERS Safety Report 8489208-6 (Version None)
Quarter: 2012Q3

REPORT INFORMATION
  Report Type: 
  Country: None (occurrence: None)
  Receive Date: 20120705
  Receipt Date: 20120628
  Transmission Date: 20120928
  Serious: Yes (Hospitalization, Other)
  Sender: FDA-Public Use
  Company Number: DE-PFIZER INC-2012092363

PATIENT
  Age: 63 Year
  Sex: Male
  Weight: 95 kg

DRUGS (13)
  1. GENOTROPIN [Suspect]
     Indication: HYPOPITUITARISM
     Dosage: 0.2 MG DAILY, 7 INJECTION/ WEEK
     Dates: start: 20001205
  2. TESTOSTERONE [Concomitant]
     Dosage: 250 MG, DAILY
     Dates: start: 19990601
  3. ANDRODERM [Concomitant]
     Dosage: DAILY
     Dates: start: 20051107
  4. VITAMIN D [Concomitant]
     Dosage: UNK
     Dates: start: 20010701
  5. CALCIUM [Concomitant]
     Dosage: UNK
     Dates: start: 20050701
  6. METOPROLOL TARTRATE [Concomitant]
     Dosage: 47.5 MG, DAILY
     Dates: start: 20050701
  7. TESTOSTERONE [Concomitant]
     Dosage: 5 MG, UNK
     Dates: start: 20060109
  8. LEVOTHYROXINE [Concomitant]
     Dosage: 50 UG, DAILY
     Dates: start: 19990415
  9. TESTOSTERONE [Concomitant]
     Dosage: 50 MG, UNK
  10. SIMVASTATIN [Concomitant]
     Dosage: 20 MG, DAILY
     Dates: start: 20090210
  11. LEVOTHYROXINE [Concomitant]
     Dosage: 75 UG, UNK
  12. NEBIDO [Concomitant]
     Dosage: 1000 MG, UNK
     Dates: start: 20051108, end: 20060108
  13. PREDNISONE TAB [Concomitant]
     Indication: BLOOD CORTICOTROPHIN DECREASED
     Dosage: 5 MG, DAILY
     Dates: start: 19990415

REACTIONS (3)
  - TRANSIENT ISCHAEMIC ATTACK [None]
  - CEREBROVASCULAR ACCIDENT [None]
  - BENIGN NEOPLASM OF THYROID GLAND [None]
